FAERS Safety Report 8261210-9 (Version None)
Quarter: 2012Q2

REPORT INFORMATION
  Report Type: 
  Country: None (occurrence: None)
  Receive Date: 20120405
  Receipt Date: 20120326
  Transmission Date: 20120825
  Serious: Yes (Other)
  Sender: FDA-Public Use
  Company Number: MY-US-EMD SERONO, INC.-7121631

PATIENT
  Age: 29 Year
  Sex: Female

DRUGS (8)
  1. LEUPROLIDE ACETATE [Suspect]
     Indication: IN VITRO FERTILISATION
     Route: 030
  2. PUREGON [Suspect]
     Indication: IN VITRO FERTILISATION
  3. PUREGON [Suspect]
     Indication: GAMETE INTRAFALLOPIAN TRANSFER
  4. OVIDREL [Suspect]
     Indication: IN VITRO FERTILISATION
     Route: 058
  5. CYCLOGEST [Suspect]
     Indication: IN VITRO FERTILISATION
  6. CYCLOGEST [Suspect]
     Indication: GAMETE INTRAFALLOPIAN TRANSFER
  7. LEUPROLIDE ACETATE [Suspect]
     Indication: GAMETE INTRAFALLOPIAN TRANSFER
     Route: 058
  8. OVIDREL [Suspect]
     Indication: GAMETE INTRAFALLOPIAN TRANSFER

REACTIONS (8)
  - MATERNAL EXPOSURE BEFORE PREGNANCY [None]
  - FOETAL DEATH [None]
  - PREMATURE DELIVERY [None]
  - OVARIAN HYPERSTIMULATION SYNDROME [None]
  - MULTIPLE PREGNANCY [None]
  - OLIGOHYDRAMNIOS [None]
  - CAESAREAN SECTION [None]
  - FOETAL GROWTH RESTRICTION [None]
